FAERS Safety Report 5907520-9 (Version None)
Quarter: 2008Q4

REPORT INFORMATION
  Report Type: 
  Country: None (occurrence: None)
  Receive Date: 20081003
  Receipt Date: 20080929
  Transmission Date: 20090506
  Serious: Yes (Hospitalization)
  Sender: FDA-Public Use
  Company Number: US-BRISTOL-MYERS SQUIBB COMPANY-14336135

PATIENT
  Age: 53 Year
  Sex: Male
  Weight: 52 kg

DRUGS (3)
  1. CETUXIMAB [Suspect]
     Indication: HEAD AND NECK CANCER
     Dosage: THERAPY START 22-JUL-2008 W/ 400 MG/M2.  TOTAL DOSE AS OF 02-SEP-2008 WAS 3252 MG.
     Dates: start: 20080902, end: 20080902
  2. CISPLATIN [Suspect]
     Indication: HEAD AND NECK CANCER
     Dosage: THERAPY START 22-JUL-2008;  TOTAL DOSE ON 18-AUG-2008 WAS 342 MG.
     Dates: start: 20080818, end: 20080818
  3. RADIATION THERAPY [Suspect]
     Indication: HEAD AND NECK CANCER
     Dosage: THERAPY START 22JUL08 W/35 FRACTIONS 2GY/FRACTION TOTAL DOSE ON 05SEP08-3200CGY, ON 19SEP08-7000CGY
     Dates: start: 20080905, end: 20080905

REACTIONS (6)
  - HAEMOGLOBIN DECREASED [None]
  - HYPONATRAEMIA [None]
  - INFECTION [None]
  - LYMPHOPENIA [None]
  - NEUTROPHIL COUNT DECREASED [None]
  - WHITE BLOOD CELL COUNT DECREASED [None]
